FAERS Safety Report 7278358-8 (Version None)
Quarter: 2011Q1

REPORT INFORMATION
  Report Type: 
  Country: None (occurrence: None)
  Receive Date: 20110207
  Receipt Date: 20110201
  Transmission Date: 20110831
  Serious: Yes (Death)
  Sender: FDA-Public Use
  Company Number: CH-ASTRAZENECA-2011SE05652

PATIENT
  Age: 79 Year
  Sex: Female
  Weight: 70 kg

DRUGS (12)
  1. NEXIUM [Interacting]
     Route: 048
     Dates: start: 20110101
  2. MS CONTIN [Concomitant]
     Route: 048
  3. IMPORTAL [Concomitant]
     Route: 048
  4. CARDAXEN [Concomitant]
     Route: 048
  5. SPIRICORT [Interacting]
     Route: 048
     Dates: start: 20110101
  6. LODINE [Interacting]
     Route: 048
     Dates: start: 20110101
  7. ALENDRON MEPHA [Suspect]
     Route: 048
     Dates: start: 20110101
  8. DEANXIT [Concomitant]
     Route: 048
  9. NOVALGIN [Suspect]
     Indication: PAIN
     Route: 048
     Dates: start: 20101201, end: 20110108
  10. MOTILIUM [Concomitant]
     Route: 048
  11. METHOTREXAT [Interacting]
     Indication: RHEUMATOID ARTHRITIS
     Route: 048
     Dates: start: 20110108
  12. CALCIMAGON [Concomitant]
     Route: 048

REACTIONS (8)
  - PNEUMONIA [None]
  - SEPSIS [None]
  - DRUG INTERACTION [None]
  - COLITIS [None]
  - CHOLECYSTITIS [None]
  - GASTROINTESTINAL HAEMORRHAGE [None]
  - PANCYTOPENIA [None]
  - OESOPHAGEAL CANDIDIASIS [None]
